FAERS Safety Report 9159541 (Version 3)
Quarter: 2013Q2

REPORT INFORMATION
  Report Type: Spontaneous
  Country: AU (occurrence: AU)
  Receive Date: 20130313
  Receipt Date: 20130403
  Transmission Date: 20140414
  Serious: Yes (Death, Life-Threatening, Disabling)
  Sender: FDA-Public Use
  Company Number: AU-B.I. PHARMACEUTICALS,INC./RIDGEFIELD-2013-AU-00268AU

PATIENT
  Age: 88 Year
  Sex: Female
  Weight: 60 kg

DRUGS (4)
  1. PRADAXA [Suspect]
     Indication: CEREBROVASCULAR ACCIDENT PROPHYLAXIS
     Dosage: 220 MG
     Dates: start: 20110706, end: 20130104
  2. PRADAXA [Suspect]
     Indication: ATRIAL FIBRILLATION
  3. AMIODARONE [Concomitant]
     Dosage: 200 MG
     Dates: start: 2003, end: 20130104
  4. FRUSEMIDE [Concomitant]
     Dosage: 40 MG
     Dates: start: 2011, end: 20130104

REACTIONS (2)
  - Cardiac arrest [Fatal]
  - Meningioma [Unknown]
